FAERS Safety Report 7672736-0 (Version None)
Quarter: 2011Q3

REPORT INFORMATION
  Report Type: 
  Country: None (occurrence: None)
  Receive Date: 20110804
  Receipt Date: 20110729
  Transmission Date: 20111222
  Serious: Yes (Other)
  Sender: FDA-Public Use
  Company Number: 2011PL000110

PATIENT
  Age: 53 Year
  Sex: Male

DRUGS (3)
  1. AZATHIOPRINE [Suspect]
     Indication: CROHN'S DISEASE
     Dosage: 200 MG; QD;
     Dates: start: 20020101, end: 20070101
  2. CORTICOSTEROIDS [Concomitant]
  3. MESALAMINE [Concomitant]

REACTIONS (8)
  - PLATELET COUNT DECREASED [None]
  - NODULAR REGENERATIVE HYPERPLASIA [None]
  - HEPATIC FIBROSIS [None]
  - CROHN'S DISEASE [None]
  - CONDITION AGGRAVATED [None]
  - ARTHRALGIA [None]
  - VARICES OESOPHAGEAL [None]
  - PORTAL HYPERTENSION [None]
